FAERS Safety Report 20728650 (Version 1)
Quarter: 2022Q2

REPORT INFORMATION
  Report Type: Spontaneous
  Country: GB (occurrence: GB)
  Receive Date: 20220420
  Receipt Date: 20220420
  Transmission Date: 20220721
  Serious: Yes (Other)
  Sender: FDA-Public Use
  Company Number: None

PATIENT

DRUGS (1)
  1. THALIDOMIDE [Suspect]
     Active Substance: THALIDOMIDE
     Indication: Product used for unknown indication
     Dosage: 100 MG PER NIGHT
     Route: 065
     Dates: start: 20220403

REACTIONS (6)
  - Heart rate increased [Unknown]
  - Reflux laryngitis [Unknown]
  - Vision blurred [Unknown]
  - Rash [Unknown]
  - Feeling of body temperature change [Unknown]
  - Dyspepsia [Unknown]

NARRATIVE: CASE EVENT DATE: 20220403
